FAERS Safety Report 8559161-5 (Version None)
Quarter: 2012Q3

REPORT INFORMATION
  Report Type: 
  Country: None (occurrence: None)
  Receive Date: 20120802
  Receipt Date: 20120724
  Transmission Date: 20120928
  Serious: No
  Sender: FDA-Public Use
  Company Number: US-009507513-1207USA009601

PATIENT

DRUGS (3)
  1. COZAAR [Suspect]
     Dosage: 100 MG, QD
     Route: 048
     Dates: start: 20110909, end: 20120608
  2. DILTIAZEM HCL [Concomitant]
     Dosage: UNK
     Dates: end: 20120704
  3. LIPITOR [Concomitant]

REACTIONS (3)
  - BLOOD CREATININE INCREASED [None]
  - RENAL IMPAIRMENT [None]
  - HEART RATE DECREASED [None]
